FAERS Safety Report 10169296 (Version 1)
Quarter: 2014Q2

REPORT INFORMATION
  Report Type: Spontaneous
  Country: US (occurrence: US)
  Receive Date: 20140513
  Receipt Date: 20140513
  Transmission Date: 20141212
  Serious: No
  Sender: FDA-Public Use
  Company Number: US-009507513-1405USA001893

PATIENT
  Sex: Female

DRUGS (1)
  1. ZOCOR [Suspect]
     Dosage: UNK
     Route: 048
     Dates: start: 20120502

REACTIONS (2)
  - Drug dispensing error [Unknown]
  - Exposure during pregnancy [Unknown]
